FAERS Safety Report 17275963 (Version 1)
Quarter: 2020Q1

REPORT INFORMATION
  Report Type: Spontaneous
  Country: US (occurrence: US)
  Receive Date: 20191226
  Receipt Date: 20191226
  Transmission Date: 20200409
  Serious: No
  Sender: FDA-Public Use
  Company Number: None

PATIENT
  Age: 66 Year
  Sex: Female

DRUGS (1)
  1. INLYTA [Suspect]
     Active Substance: AXITINIB
     Route: 048
     Dates: start: 20191114

REACTIONS (6)
  - Weight decreased [None]
  - Fatigue [None]
  - Hypertension [None]
  - Constipation [None]
  - Therapy cessation [None]
  - Decreased appetite [None]

NARRATIVE: CASE EVENT DATE: 20191226
